FAERS Safety Report 9323061 (Version 2)
Quarter: 2013Q4

REPORT INFORMATION
  Report Type: Spontaneous
  Country: NL (occurrence: NL)
  Receive Date: 20130603
  Receipt Date: 20131009
  Transmission Date: 20140711
  Serious: Yes (Other)
  Sender: FDA-Public Use
  Company Number: PHHY2013NL053804

PATIENT
  Age: 74 Year
  Sex: Female

DRUGS (5)
  1. EXELON PATCH [Suspect]
     Indication: DEMENTIA ALZHEIMER^S TYPE
     Dosage: 4.6 MG/24 HOURS
     Route: 062
     Dates: start: 2011, end: 2012
  2. VALSARTAN [Concomitant]
     Dosage: 1 DF DAILY
  3. PROPRANOLOL [Concomitant]
     Dosage: 2 DF, DAILY
  4. MYSOLINE [Concomitant]
     Dosage: 125 MG, DAILY
  5. TEMAZEPAM [Concomitant]
     Dosage: 1 DF, DAILY
     Route: 048

REACTIONS (1)
  - Plasmacytoma [Not Recovered/Not Resolved]
